FAERS Safety Report 12053011 (Version 1)
Quarter: 2016Q1

REPORT INFORMATION
  Report Type: Report from Study
  Country: US (occurrence: US)
  Receive Date: 20160209
  Receipt Date: 20160209
  Transmission Date: 20160526
  Serious: Yes (Death, Hospitalization)
  Sender: FDA-Public Use
  Company Number: US-BAYER-2015-492503

PATIENT
  Age: 82 Year
  Sex: Male
  Weight: 74.83 kg

DRUGS (2)
  1. ADEMPAS [Suspect]
     Active Substance: RIOCIGUAT
     Indication: PULMONARY ARTERIAL HYPERTENSION
     Dosage: UNK
     Dates: start: 20150428
  2. ADEMPAS [Suspect]
     Active Substance: RIOCIGUAT
     Indication: PULMONARY ARTERIAL HYPERTENSION
     Dosage: 2 MG, TID
     Route: 048

REACTIONS (7)
  - Myocardial infarction [Unknown]
  - Colectomy [Unknown]
  - Lens disorder [Unknown]
  - Clostridium difficile infection [Unknown]
  - Colostomy [Unknown]
  - Death [Fatal]
  - Arthritis infective [Unknown]

NARRATIVE: CASE EVENT DATE: 20160203
